FAERS Safety Report 4739893-7 (Version None)
Quarter: 2005Q3

REPORT INFORMATION
  Report Type: 
  Country: None (occurrence: None)
  Receive Date: 20050810
  Receipt Date: 20010327
  Transmission Date: 20060218
  Serious: No
  Sender: FDA-Public Use
  Company Number: US-GLAXOSMITHKLINE-A0345532A

PATIENT
  Age: 63 Year
  Sex: Female
  Weight: 63.94 kg

DRUGS (10)
  1. PAXIL [Suspect]
     Dosage: 2.5MG ALTERNATE DAYS
     Route: 048
     Dates: start: 20010101, end: 20010217
  2. PAXIL [Suspect]
     Dosage: 20MG PER DAY
     Route: 048
     Dates: start: 19980827, end: 20010101
  3. PAXIL [Suspect]
     Dosage: 20MG ALTERNATE DAYS
     Route: 048
     Dates: start: 20010101, end: 20010101
  4. PAXIL [Suspect]
     Dosage: 10MG ALTERNATE DAYS
     Route: 048
     Dates: start: 20010101, end: 20010101
  5. PAXIL [Suspect]
     Dosage: 10MG ALTERNATE DAYS
     Route: 048
     Dates: start: 20010101, end: 20010101
  6. PAXIL [Suspect]
     Dosage: 5MG ALTERNATE DAYS
     Route: 048
     Dates: start: 20010101, end: 20010101
  7. PAXIL [Suspect]
     Dosage: 5MG ALTERNATE DAYS
     Route: 048
     Dates: start: 20010101, end: 20010101
  8. VALIUM [Concomitant]
     Dosage: 2.5MG AS REQUIRED
  9. VITAMINS [Concomitant]
  10. FLU VACCINE [Concomitant]
     Dates: start: 20001101, end: 20001101

REACTIONS (12)
  - BLOOD CHOLESTEROL INCREASED [None]
  - BLOOD PRESSURE INCREASED [None]
  - CONFUSIONAL STATE [None]
  - DISTURBANCE IN ATTENTION [None]
  - DRUG WITHDRAWAL SYNDROME [None]
  - HYPOAESTHESIA [None]
  - HYPOAESTHESIA ORAL [None]
  - MEMORY IMPAIRMENT [None]
  - MENTAL IMPAIRMENT [None]
  - NIGHTMARE [None]
  - PARAESTHESIA [None]
  - WEIGHT INCREASED [None]
